FAERS Safety Report 6490855-1 (Version None)
Quarter: 2009Q4

REPORT INFORMATION
  Report Type: 
  Country: None (occurrence: None)
  Receive Date: 20091211
  Receipt Date: 20091204
  Transmission Date: 20100525
  Serious: Yes (Other)
  Sender: FDA-Public Use
  Company Number: CA-JNJFOC-20090908937

PATIENT
  Age: 60 Year
  Sex: Female

DRUGS (13)
  1. NIZORAL [Suspect]
     Route: 061
     Dates: start: 20090909, end: 20090913
  2. NIZORAL [Suspect]
     Indication: DERMATITIS
     Route: 061
     Dates: start: 20090909, end: 20090913
  3. ALL OTHER THERAPEUTIC PRODUCTS [Concomitant]
     Route: 048
  4. OMEGA 3 SUPPLEMENT [Concomitant]
     Route: 065
  5. DIOVAN [Concomitant]
     Route: 065
  6. FUROSEMIDE [Concomitant]
     Route: 048
  7. HALIBUT LIVER OIL [Concomitant]
     Route: 048
  8. ASPIRIN [Concomitant]
     Route: 065
  9. GARLIC [Concomitant]
     Route: 065
  10. VITAMIN E (TOCOPHERYL ACETATE) [Concomitant]
     Route: 065
  11. GLUCOSAMINE SULFATE [Concomitant]
     Route: 065
  12. CALCIUM [Concomitant]
     Route: 065
  13. VITAMIN D3 [Concomitant]
     Route: 065

REACTIONS (8)
  - ALOPECIA [None]
  - APPLICATION SITE BURN [None]
  - APPLICATION SITE DISCOLOURATION [None]
  - APPLICATION SITE EXFOLIATION [None]
  - APPLICATION SITE PRURITUS [None]
  - APPLICATION SITE VESICLES [None]
  - SEBORRHOEIC DERMATITIS [None]
  - WRONG TECHNIQUE IN DRUG USAGE PROCESS [None]
